FAERS Safety Report 14927805 (Version 1)
Quarter: 2018Q2

REPORT INFORMATION
  Report Type: Spontaneous
  Country: US (occurrence: US)
  Receive Date: 20180523
  Receipt Date: 20180523
  Transmission Date: 20180711
  Serious: Yes (Death, Hospitalization, Other)
  Sender: FDA-Public Use
  Company Number: US-JNJFOC-20180514287

PATIENT

DRUGS (2)
  1. ACETAMINOPHEN. [Suspect]
     Active Substance: ACETAMINOPHEN
     Route: 065
  2. ACETAMINOPHEN. [Suspect]
     Active Substance: ACETAMINOPHEN
     Indication: PRODUCT USED FOR UNKNOWN INDICATION
     Route: 065

REACTIONS (7)
  - Hepatic encephalopathy [Unknown]
  - Systemic inflammatory response syndrome [Unknown]
  - Spontaneous haemorrhage [Fatal]
  - Post procedural haemorrhage [Fatal]
  - Acute hepatic failure [Fatal]
  - Death [Fatal]
  - Infection [Unknown]
